FAERS Safety Report 25742167 (Version 1)
Quarter: 2025Q3

REPORT INFORMATION
  Report Type: Report from Study
  Country: US (occurrence: US)
  Receive Date: 20250829
  Receipt Date: 20250829
  Transmission Date: 20251021
  Serious: Yes (Other)
  Sender: ABBVIE
  Company Number: US-ABBVIE-6435351

PATIENT
  Age: 76 Year
  Sex: Male

DRUGS (1)
  1. CREON [Suspect]
     Active Substance: PANCRELIPASE AMYLASE\PANCRELIPASE LIPASE\PANCRELIPASE PROTEASE
     Indication: Pancreatic failure
     Route: 048
     Dates: start: 20250707

REACTIONS (5)
  - Loss of consciousness [Unknown]
  - Eye contusion [Unknown]
  - Head injury [Unknown]
  - Laboratory test abnormal [Unknown]
  - Eye injury [Unknown]

NARRATIVE: CASE EVENT DATE: 20250801
